FAERS Safety Report 8235246-8 (Version None)
Quarter: 2012Q1

REPORT INFORMATION
  Report Type: 
  Country: None (occurrence: None)
  Receive Date: 20120326
  Receipt Date: 20120322
  Transmission Date: 20120608
  Serious: Yes (Other)
  Sender: FDA-Public Use
  Company Number: GB-PFIZER INC-2012074245

PATIENT
  Age: 43 Year
  Sex: Male
  Weight: 81.82 kg

DRUGS (1)
  1. VARENICLINE TARTRATE [Suspect]
     Indication: SMOKING CESSATION THERAPY
     Dosage: CHAMPIX STARTER PACK
     Route: 048
     Dates: start: 20120207, end: 20120218

REACTIONS (5)
  - LIP SWELLING [None]
  - AURICULAR SWELLING [None]
  - BLISTER [None]
  - SWELLING FACE [None]
  - NASAL OEDEMA [None]
